FAERS Safety Report 6814023-6 (Version None)
Quarter: 2010Q3

REPORT INFORMATION
  Report Type: 
  Country: None (occurrence: None)
  Receive Date: 20100702
  Receipt Date: 20100621
  Transmission Date: 20110219
  Serious: Yes (Hospitalization, Other)
  Sender: FDA-Public Use
  Company Number: PHFR2010GB00848

PATIENT
  Sex: Female

DRUGS (2)
  1. CLOZARIL [Suspect]
     Indication: SCHIZOPHRENIA
     Dosage: 100MG MANE / 275MG NOCTE
     Route: 048
     Dates: start: 20100512
  2. HYOSCINE HBR HYT [Concomitant]

REACTIONS (9)
  - ARTHRALGIA [None]
  - BLOOD PRESSURE INCREASED [None]
  - C-REACTIVE PROTEIN INCREASED [None]
  - CHILLS [None]
  - HEART RATE INCREASED [None]
  - INFLUENZA LIKE ILLNESS [None]
  - PYREXIA [None]
  - TOOTHACHE [None]
  - WHITE BLOOD CELL COUNT INCREASED [None]
